FAERS Safety Report 15927285 (Version 1)
Quarter: 2019Q1

REPORT INFORMATION
  Report Type: Spontaneous
  Country: US (occurrence: US)
  Receive Date: 20190206
  Receipt Date: 20190206
  Transmission Date: 20190417
  Serious: No
  Sender: FDA-Public Use
  Company Number: US-DRREDDYS-USA/USA/19/0107382

PATIENT
  Sex: Male

DRUGS (2)
  1. HABITROL [Suspect]
     Active Substance: NICOTINE
     Indication: PRODUCT USED FOR UNKNOWN INDICATION
     Route: 062
  2. HABITROL [Suspect]
     Active Substance: NICOTINE
     Route: 062

REACTIONS (3)
  - Drug ineffective [Unknown]
  - Nicotine dependence [Unknown]
  - Product quality issue [Unknown]
